FAERS Safety Report 23503949 (Version 1)
Quarter: 2024Q1

REPORT INFORMATION
  Report Type: Spontaneous
  Country: EG (occurrence: EG)
  Receive Date: 20240209
  Receipt Date: 20240209
  Transmission Date: 20240410
  Serious: Yes (Hospitalization, Other)
  Sender: FDA-Public Use
  Company Number: EG-NOVOPROD-1169697

PATIENT
  Sex: Male

DRUGS (1)
  1. INSULIN HUMAN [Suspect]
     Active Substance: INSULIN HUMAN
     Indication: Diabetes mellitus
     Dosage: 80 IU, QD(50 IU MORNING AND 30 IU AT NIGHT)
     Route: 058
     Dates: start: 1996

REACTIONS (2)
  - Cataract [Unknown]
  - Visual impairment [Not Recovered/Not Resolved]
